FAERS Safety Report 12937592 (Version 2)
Quarter: 2017Q3

REPORT INFORMATION
  Report Type: Report from Study
  Country: None (occurrence: BR)
  Receive Date: 20161114
  Receipt Date: 20170725
  Transmission Date: 20171127
  Serious: Yes (Other)
  Sender: FDA-Public Use
  Company Number: BR-ABBVIE-16P-020-1780379-00

PATIENT
  Sex: Female
  Weight: 65 kg

DRUGS (1)
  1. SYNTHROID [Suspect]
     Active Substance: LEVOTHYROXINE SODIUM
     Indication: HYPOTHYROIDISM
     Route: 048
     Dates: start: 201608

REACTIONS (5)
  - Leiomyoma [Recovered/Resolved]
  - Depression [Recovering/Resolving]
  - Depressed mood [Recovering/Resolving]
  - Hormone level abnormal [Recovered/Resolved]
  - Uterine enlargement [Recovered/Resolved]

NARRATIVE: CASE EVENT DATE: 2016
